FAERS Safety Report 17705434 (Version 3)
Quarter: 2020Q2

REPORT INFORMATION
  Report Type: Report from Study
  Country: CA (occurrence: CA)
  Receive Date: 20200424
  Receipt Date: 20200525
  Transmission Date: 20200714
  Serious: Yes (Hospitalization, Other)
  Sender: FDA-Public Use
  Company Number: CA-GLAXOSMITHKLINE-CA2020AMR069192

PATIENT
  Sex: Female

DRUGS (1)
  1. MEPOLIZUMAB [Suspect]
     Active Substance: MEPOLIZUMAB
     Indication: ASTHMA
     Dosage: 100 MG, Z, ONCE MONTHLY
     Route: 042
     Dates: start: 20190409

REACTIONS (5)
  - Pneumonia [Unknown]
  - Therapy interrupted [Unknown]
  - Hospitalisation [Unknown]
  - Social problem [Unknown]
  - Acute respiratory distress syndrome [Unknown]
